FAERS Safety Report 14251748 (Version 3)
Quarter: 2018Q1

REPORT INFORMATION
  Report Type: Spontaneous
  Country: IT (occurrence: IT)
  Receive Date: 20171205
  Receipt Date: 20180308
  Transmission Date: 20180508
  Serious: Yes (Life-Threatening)
  Sender: FDA-Public Use
  Company Number: IT-009507513-1711ITA006239

PATIENT
  Age: 51 Year
  Sex: Female
  Weight: 110 kg

DRUGS (1)
  1. BRIDION [Suspect]
     Active Substance: SUGAMMADEX
     Indication: NEUROMUSCULAR TOXICITY
     Dosage: STRENGTH: 20 MG/2ML; 200 MG, AS NEEDED/ AS NECESSARY
     Route: 040
     Dates: start: 20171102, end: 20171102

REACTIONS (3)
  - Extrasystoles [Recovered/Resolved]
  - Laryngeal oedema [Recovered/Resolved]
  - Bradycardia [Recovered/Resolved]

NARRATIVE: CASE EVENT DATE: 20171102
